FAERS Safety Report 4678340-0 (Version None)
Quarter: 2005Q2

REPORT INFORMATION
  Report Type: 
  Country: None (occurrence: None)
  Receive Date: 20050531
  Receipt Date: 20050531
  Transmission Date: 20051028
  Serious: Yes (Other)
  Sender: FDA-Public Use
  Company Number: None

PATIENT
  Age: 72 Year
  Sex: Male
  Weight: 78.4723 kg

DRUGS (1)
  1. LIPITOR [Suspect]
     Indication: CAROTID ARTERY OCCLUSION
     Dosage: ONE DAILY

REACTIONS (1)
  - AMNESIA [None]
